FAERS Safety Report 10296869 (Version 1)
Quarter: 2014Q3

REPORT INFORMATION
  Report Type: Report from Study
  Country: US (occurrence: US)
  Receive Date: 20140711
  Receipt Date: 20140711
  Transmission Date: 20150326
  Serious: Yes (Hospitalization, Other)
  Sender: FDA-Public Use
  Company Number: US-JNJFOC-20140702952

PATIENT
  Sex: Female
  Weight: 67.13 kg

DRUGS (7)
  1. VITAMINS NOS [Concomitant]
     Active Substance: VITAMINS
     Route: 065
  2. REMICADE [Suspect]
     Active Substance: INFLIXIMAB
     Indication: RHEUMATOID ARTHRITIS
     Route: 042
     Dates: start: 201003, end: 201008
  3. REMICADE [Suspect]
     Active Substance: INFLIXIMAB
     Indication: RHEUMATOID ARTHRITIS
     Route: 042
     Dates: start: 2001, end: 200910
  4. ARAVA [Concomitant]
     Active Substance: LEFLUNOMIDE
     Indication: RHEUMATOID ARTHRITIS
     Route: 065
  5. REMICADE [Suspect]
     Active Substance: INFLIXIMAB
     Indication: RHEUMATOID ARTHRITIS
     Route: 042
     Dates: start: 201104, end: 201110
  6. PREMARIN [Concomitant]
     Active Substance: ESTROGENS, CONJUGATED
     Route: 065
  7. REMICADE [Suspect]
     Active Substance: INFLIXIMAB
     Indication: RHEUMATOID ARTHRITIS
     Route: 042
     Dates: start: 2002

REACTIONS (8)
  - Bladder operation [Unknown]
  - Drug ineffective [Not Recovered/Not Resolved]
  - Squamous cell carcinoma [Recovered/Resolved]
  - Dysuria [Unknown]
  - Adenocarcinoma [Recovered/Resolved]
  - Precancerous cells present [Not Recovered/Not Resolved]
  - Pulmonary mass [Not Recovered/Not Resolved]
  - Abdominal mass [Not Recovered/Not Resolved]

NARRATIVE: CASE EVENT DATE: 2009
